FAERS Safety Report 19885943 (Version 1)
Quarter: 2021Q3

REPORT INFORMATION
  Report Type: Report from Study
  Country: US (occurrence: US)
  Receive Date: 20210927
  Receipt Date: 20210927
  Transmission Date: 20211014
  Serious: Yes (Hospitalization, Other)
  Sender: FDA-Public Use
  Company Number: US-JAZZ-2021-US-017467

PATIENT
  Sex: Female

DRUGS (2)
  1. XYWAV [Suspect]
     Active Substance: CALCIUM OXYBATE\MAGNESIUM OXYBATE\POTASSIUM OXYBATE\SODIUM OXYBATE
     Indication: NARCOLEPSY
     Dosage: 4 GRAM, FIRST DOSE
     Route: 048
     Dates: start: 202101, end: 202108
  2. XYWAV [Suspect]
     Active Substance: CALCIUM OXYBATE\MAGNESIUM OXYBATE\POTASSIUM OXYBATE\SODIUM OXYBATE
     Indication: CATAPLEXY
     Dosage: 3.75 GRAM, SECOND DOSE
     Route: 048
     Dates: start: 202101, end: 202108

REACTIONS (4)
  - Nausea [Unknown]
  - Hernia [Unknown]
  - Micturition urgency [Not Recovered/Not Resolved]
  - Small intestinal obstruction [Unknown]
